FAERS Safety Report 16864219 (Version 2)
Quarter: 2020Q2

REPORT INFORMATION
  Report Type: Spontaneous
  Country: US (occurrence: US)
  Receive Date: 20190927
  Receipt Date: 20200402
  Transmission Date: 20200713
  Serious: No
  Sender: FDA-Public Use
  Company Number: US-SA-2019SA265526

PATIENT
  Age: 38 Year
  Sex: Female

DRUGS (2)
  1. GILENYA [Concomitant]
     Active Substance: FINGOLIMOD HYDROCHLORIDE
  2. AUBAGIO [Suspect]
     Active Substance: TERIFLUNOMIDE
     Indication: MULTIPLE SCLEROSIS
     Dosage: 14 MG, QD
     Route: 048
     Dates: start: 201908

REACTIONS (11)
  - Chills [Unknown]
  - Headache [Unknown]
  - Somnolence [Unknown]
  - Cough [Unknown]
  - Dyspnoea [Unknown]
  - Oropharyngeal pain [Unknown]
  - Nausea [Unknown]
  - Fatigue [Unknown]
  - Myalgia [Unknown]
  - Dysgeusia [Unknown]
  - Chest discomfort [Unknown]

NARRATIVE: CASE EVENT DATE: 20190917
